FAERS Safety Report 13910298 (Version 1)
Quarter: 2017Q3

REPORT INFORMATION
  Report Type: Spontaneous
  Country: US (occurrence: None)
  Receive Date: 20170822
  Receipt Date: 20170822
  Transmission Date: 20171127
  Serious: Yes (Hospitalization)
  Sender: FDA-Public Use
  Company Number: None

PATIENT
  Age: 59 Year
  Sex: Male

DRUGS (18)
  1. GABAPENTIN. [Concomitant]
     Active Substance: GABAPENTIN
  2. VITAMIN D3 [Concomitant]
     Active Substance: CHOLECALCIFEROL
  3. FORTESTA [Concomitant]
     Active Substance: TESTOSTERONE
  4. HYDROCHLORTHIAZIDE [Concomitant]
     Active Substance: HYDROCHLOROTHIAZIDE
  5. METFORMIN [Concomitant]
     Active Substance: METFORMIN HYDROCHLORIDE
  6. SANDOSTATIN [Concomitant]
     Active Substance: OCTREOTIDE ACETATE
  7. AMLODIPINE [Concomitant]
     Active Substance: AMLODIPINE BESYLATE
  8. ATORVASTATIN [Concomitant]
     Active Substance: ATORVASTATIN
  9. BUPROPION. [Concomitant]
     Active Substance: BUPROPION
  10. COREG [Concomitant]
     Active Substance: CARVEDILOL
  11. FORTESTA [Concomitant]
     Active Substance: TESTOSTERONE
  12. LOSARTAN. [Concomitant]
     Active Substance: LOSARTAN
  13. OXYCODONE [Concomitant]
     Active Substance: OXYCODONE
  14. LEVOTHYROXINE. [Concomitant]
     Active Substance: LEVOTHYROXINE
  15. SOMAVERT [Suspect]
     Active Substance: PEGVISOMANT
     Indication: ACROMEGALY
     Route: 058
     Dates: start: 20170224
  16. SOMAVERT [Suspect]
     Active Substance: PEGVISOMANT
     Indication: GIGANTISM
     Route: 058
     Dates: start: 20170224
  17. FLONASE [Concomitant]
     Active Substance: FLUTICASONE PROPIONATE
  18. ZETIA [Concomitant]
     Active Substance: EZETIMIBE

REACTIONS (1)
  - Surgery [None]

NARRATIVE: CASE EVENT DATE: 20170803
